FAERS Safety Report 7365984-0 (Version None)
Quarter: 2011Q1

REPORT INFORMATION
  Report Type: 
  Country: None (occurrence: None)
  Receive Date: 20110322
  Receipt Date: 20110311
  Transmission Date: 20110831
  Serious: Yes (Hospitalization)
  Sender: FDA-Public Use
  Company Number: DK-NOVOPROD-309936

PATIENT
  Age: 65 Year
  Sex: Male

DRUGS (1)
  1. VICTOZA [Suspect]
     Indication: PRODUCT USED FOR UNKNOWN INDICATION
     Dosage: 1.2 MG, QD
     Dates: start: 20091008, end: 20100402

REACTIONS (2)
  - DIABETIC KETOACIDOSIS [None]
  - PANCREATIC CARCINOMA [None]
